FAERS Safety Report 13457999 (Version 2)
Quarter: 2017Q2

REPORT INFORMATION
  Report Type: Spontaneous
  Country: US (occurrence: US)
  Receive Date: 20170419
  Receipt Date: 20170427
  Transmission Date: 20170830
  Serious: Yes (Other)
  Sender: FDA-Public Use
  Company Number: US-JNJFOC-20170413031

PATIENT
  Sex: Male
  Weight: 49.9 kg

DRUGS (6)
  1. DEPAKOTE [Concomitant]
     Active Substance: DIVALPROEX SODIUM
     Route: 065
  2. L-ASCORBIC ACID [Concomitant]
     Route: 065
  3. TOPAMAX [Concomitant]
     Active Substance: TOPIRAMATE
     Indication: SEIZURE
     Route: 065
  4. RISPERDAL [Suspect]
     Active Substance: RISPERIDONE
     Indication: INTELLECTUAL DISABILITY
     Route: 048
     Dates: start: 2004, end: 2004
  5. RISPERDAL [Suspect]
     Active Substance: RISPERIDONE
     Indication: INTELLECTUAL DISABILITY
     Route: 048
     Dates: start: 2017, end: 2017
  6. RISPERDAL M-TAB [Suspect]
     Active Substance: RISPERIDONE
     Indication: INTELLECTUAL DISABILITY
     Route: 048
     Dates: start: 2004, end: 2017

REACTIONS (11)
  - Underdose [Unknown]
  - Renal neoplasm [Not Recovered/Not Resolved]
  - Product use in unapproved indication [Unknown]
  - Off label use [Unknown]
  - Abnormal behaviour [Unknown]
  - Regurgitation [Unknown]
  - Renal disorder [Not Recovered/Not Resolved]
  - Overdose [Unknown]
  - Brain neoplasm [Not Recovered/Not Resolved]
  - Fall [Unknown]
  - Product availability issue [Unknown]

NARRATIVE: CASE EVENT DATE: 2004
